FAERS Safety Report 16246083 (Version 1)
Quarter: 2019Q2

REPORT INFORMATION
  Report Type: Spontaneous
  Country: US (occurrence: US)
  Receive Date: 20190426
  Receipt Date: 20190426
  Transmission Date: 20190711
  Serious: Yes (Hospitalization)
  Sender: FDA-Public Use
  Company Number: US-VALIDUS PHARMACEUTICALS LLC-US-2019VAL000219

PATIENT

DRUGS (15)
  1. METOLAZONE. [Concomitant]
     Active Substance: METOLAZONE
     Indication: PRODUCT USED FOR UNKNOWN INDICATION
     Dosage: 1 DF, EVERY ALTERNATE DAY
     Route: 048
     Dates: start: 20181126
  2. SPIRONOLACTONE. [Concomitant]
     Active Substance: SPIRONOLACTONE
     Indication: PRODUCT USED FOR UNKNOWN INDICATION
     Dosage: 1 DF, QD
     Route: 048
  3. TRAZODONE HYDROCHLORIDE. [Concomitant]
     Active Substance: TRAZODONE HYDROCHLORIDE
     Indication: PRODUCT USED FOR UNKNOWN INDICATION
     Dosage: 1 DF, AT BEDTIME AS NEEDED
     Route: 048
  4. ATENOLOL. [Concomitant]
     Active Substance: ATENOLOL
     Indication: PRODUCT USED FOR UNKNOWN INDICATION
     Dosage: 1 DF, QD
     Route: 048
     Dates: start: 20150521
  5. XARELTO [Concomitant]
     Active Substance: RIVAROXABAN
     Indication: PRODUCT USED FOR UNKNOWN INDICATION
     Dosage: 1 DF, QD
     Route: 048
     Dates: start: 20180904
  6. LASIX [Suspect]
     Active Substance: FUROSEMIDE
     Indication: CARDIOVASCULAR DISORDER
     Dosage: 40 MG, EVERY DAY EXCEPT WEDNESDAY (TABLET)
     Route: 048
     Dates: start: 20110203
  7. LASIX [Suspect]
     Active Substance: FUROSEMIDE
     Dosage: 80 MG, EVERY WEDNESDAY WEEKLY (10 MG/ML INJECTION SOLUTION)
     Route: 042
     Dates: start: 20181130
  8. FLUTICASONE PROPIONATE. [Concomitant]
     Active Substance: FLUTICASONE PROPIONATE
     Indication: PRODUCT USED FOR UNKNOWN INDICATION
     Dosage: 50 ?G, UNK
     Route: 045
     Dates: start: 20150505
  9. NITROSTAT [Concomitant]
     Active Substance: NITROGLYCERIN
     Indication: CHEST PAIN
     Dosage: 1 DF, AS NEEDED
     Route: 060
  10. SIMVASTATIN. [Concomitant]
     Active Substance: SIMVASTATIN
     Indication: PRODUCT USED FOR UNKNOWN INDICATION
     Dosage: 10 MG, QD
     Route: 048
  11. KLOR-CON M20 [Concomitant]
     Active Substance: POTASSIUM CHLORIDE
     Indication: PRODUCT USED FOR UNKNOWN INDICATION
     Dosage: 1 DF, BID
     Route: 048
     Dates: start: 20090804
  12. LISINOPRIL. [Concomitant]
     Active Substance: LISINOPRIL
     Indication: PRODUCT USED FOR UNKNOWN INDICATION
     Dosage: 1 DF, QD
     Route: 048
     Dates: start: 20100428
  13. LASIX [Suspect]
     Active Substance: FUROSEMIDE
     Dosage: 80 MG, EVERY MONDAY WEEKLY (10 MG/ML INJECTION SOLUTION)
     Route: 042
  14. LASIX [Suspect]
     Active Substance: FUROSEMIDE
     Dosage: 80 MG, EVERY DAY EXCEPT MONDAY (TABLET)
     Route: 048
  15. DRONABINOL. [Concomitant]
     Active Substance: DRONABINOL
     Indication: DECREASED APPETITE
     Dosage: 2.5 MG, UNK
     Route: 048
     Dates: start: 20181114

REACTIONS (8)
  - Blood pressure systolic decreased [Recovered/Resolved]
  - Oedema peripheral [Recovered/Resolved]
  - Urinary tract infection [Unknown]
  - Face oedema [Unknown]
  - Dyspnoea [Unknown]
  - Oedema [Unknown]
  - Dizziness [Unknown]
  - Dyspnoea at rest [Unknown]

NARRATIVE: CASE EVENT DATE: 2019
